FAERS Safety Report 5614224-9 (Version None)
Quarter: 2008Q1

REPORT INFORMATION
  Report Type: 
  Country: None (occurrence: None)
  Receive Date: 20080205
  Receipt Date: 20080204
  Transmission Date: 20080703
  Serious: Yes (Other)
  Sender: FDA-Public Use
  Company Number: A0703193A

PATIENT
  Age: 56 Year
  Sex: Female

DRUGS (1)
  1. ALLI [Suspect]
     Indication: WEIGHT LOSS DIET
     Route: 048
     Dates: start: 20071001

REACTIONS (6)
  - ASTHMA [None]
  - DYSPNOEA [None]
  - FRUSTRATION [None]
  - MALAISE [None]
  - WEIGHT FLUCTUATION [None]
  - WEIGHT INCREASED [None]
